FAERS Safety Report 8457390-2 (Version None)
Quarter: 2012Q2

REPORT INFORMATION
  Report Type: 
  Country: None (occurrence: None)
  Receive Date: 20120621
  Receipt Date: 20120606
  Transmission Date: 20120825
  Serious: Yes (Disabling)
  Sender: FDA-Public Use
  Company Number: JP-BAYER-200911372BYL

PATIENT
  Age: 68 Year
  Sex: Female
  Weight: 45.6 kg

DRUGS (11)
  1. OMNISCAN [Suspect]
     Indication: NUCLEAR MAGNETIC RESONANCE IMAGING ABDOMINAL
     Route: 042
     Dates: start: 20021228, end: 20021228
  2. CALCIUM CARBONATE [Concomitant]
     Dosage: 3 G (DAILY DOSE), , ORAL
     Route: 048
  3. FERROUS CITRATE [Concomitant]
     Dosage: 0.6 G (DAILY DOSE), , ORAL
     Route: 048
  4. PRIMPERAN TAB [Concomitant]
     Dosage: 5 MG (DAILY DOSE), , ORAL
     Route: 048
  5. METOPROLOL TARTRATE [Concomitant]
     Dosage: 120 MG (DAILY DOSE), , ORAL
     Route: 048
  6. MAGNEVIST [Suspect]
     Indication: NUCLEAR MAGNETIC RESONANCE IMAGING
     Route: 042
     Dates: start: 20050208, end: 20050208
  7. OMNISCAN [Suspect]
     Indication: NUCLEAR MAGNETIC RESONANCE IMAGING
     Route: 042
     Dates: start: 20060527, end: 20060527
  8. POTASSIUM GLUCONATE TAB [Concomitant]
     Dosage: 2 G (DAILY DOSE), , ORAL
     Route: 048
  9. SELBEX [Concomitant]
     Dosage: 150 MG (DAILY DOSE), , ORAL
     Route: 048
  10. CLONAZEPAM [Concomitant]
     Dosage: 0.5 MG (DAILY DOSE), , ORAL
     Route: 048
  11. BEPRICOR [Concomitant]
     Dosage: 100 MG (DAILY DOSE), , ORAL
     Route: 048

REACTIONS (1)
  - NEPHROGENIC SYSTEMIC FIBROSIS [None]
